FAERS Safety Report 19670881 (Version 4)
Quarter: 2021Q4

REPORT INFORMATION
  Report Type: Report from Study
  Country: CO (occurrence: CO)
  Receive Date: 20210806
  Receipt Date: 20211216
  Transmission Date: 20220303
  Serious: Yes (Hospitalization)
  Sender: FDA-Public Use
  Company Number: NVSC2021CO174591

PATIENT
  Sex: Female

DRUGS (1)
  1. ELTROMBOPAG OLAMINE [Suspect]
     Active Substance: ELTROMBOPAG OLAMINE
     Indication: Aplastic anaemia
     Dosage: 150 MG, QD
     Route: 048

REACTIONS (6)
  - Hypoaesthesia [Unknown]
  - Dyspnoea [Unknown]
  - Fatigue [Unknown]
  - Aplastic anaemia [Unknown]
  - Asthenia [Unknown]
  - Product dose omission issue [Unknown]
